FAERS Safety Report 7887979-0 (Version None)
Quarter: 2011Q4

REPORT INFORMATION
  Report Type: 
  Country: None (occurrence: None)
  Receive Date: 20111103
  Receipt Date: 20111027
  Transmission Date: 20120403
  Serious: Yes (Hospitalization)
  Sender: FDA-Public Use
  Company Number: JP-ASTELLAS-2011JP003729

PATIENT
  Sex: Female
  Weight: 53.6 kg

DRUGS (15)
  1. BUFFERIN [Concomitant]
     Indication: SCLERODERMA
     Dosage: 81 MG, UID/QD
     Route: 048
  2. PROGRAF [Suspect]
     Dosage: 1 MG, UID/QD
     Route: 048
     Dates: start: 20110525, end: 20110530
  3. ONEALFA [Concomitant]
     Indication: OSTEOPOROSIS
     Dosage: 0.5 UG, UID/QD
     Route: 048
  4. SELBEX [Concomitant]
     Indication: GASTRITIS
     Dosage: 50 MG, TID
     Route: 048
  5. KETOPROFEN [Concomitant]
     Indication: RHEUMATOID ARTHRITIS
     Dosage: 20 MG, UID/QD
     Route: 062
  6. CONIEL [Concomitant]
     Indication: HYPERTENSION
     Dosage: 4 MG, UID/QD
     Route: 048
  7. CELECOXIB [Concomitant]
     Indication: RHEUMATOID ARTHRITIS
     Dosage: 100 MG, BID
     Route: 048
  8. ALENDRONATE SODIUM [Concomitant]
     Route: 065
  9. PREDNISOLONE [Concomitant]
     Indication: RHEUMATOID ARTHRITIS
     Dosage: 5 MG, UID/QD
     Route: 048
  10. VITAMEDIN [Concomitant]
     Indication: HYPOVITAMINOSIS
     Dosage: 25 MG, BID
     Route: 048
  11. JUVELA N [Concomitant]
     Indication: SCLERODERMA
     Dosage: 100 MG, TID
     Route: 048
  12. PROGRAF [Suspect]
     Indication: RHEUMATOID ARTHRITIS
     Dosage: 1 MG, UID/QD
     Route: 048
     Dates: start: 20061204, end: 20110501
  13. RIMATIL [Concomitant]
     Indication: RHEUMATOID ARTHRITIS
     Dosage: 100 MG, UID/QD
     Route: 048
  14. BUFFERIN [Concomitant]
     Indication: HYPERTENSION
  15. LOXONIN [Concomitant]
     Route: 065

REACTIONS (2)
  - ENCEPHALITIS [None]
  - INAPPROPRIATE ANTIDIURETIC HORMONE SECRETION [None]
